FAERS Safety Report 16590995 (Version 1)
Quarter: 2019Q3

REPORT INFORMATION
  Report Type: Spontaneous
  Country: US (occurrence: US)
  Receive Date: 20190604
  Receipt Date: 20190604
  Transmission Date: 20191004
  Serious: Yes (Death, Life-Threatening, Hospitalization, Other)
  Sender: FDA-Public Use
  Company Number: None

PATIENT
  Age: 54 Year
  Sex: Male
  Weight: 154.22 kg

DRUGS (16)
  1. MONTELUKAST [Concomitant]
     Active Substance: MONTELUKAST SODIUM
  2. TECHNETIUM TC-99M SULFUR COLLOID KIT [Suspect]
     Active Substance: TECHNETIUM TC-99M SULFUR COLLOID
     Indication: SCAN SPLEEN
     Dates: start: 20190515, end: 20190515
  3. TRULICITY [Concomitant]
     Active Substance: DULAGLUTIDE
  4. ALBUTEROL. [Concomitant]
     Active Substance: ALBUTEROL
  5. ASTORVATATIN [Concomitant]
  6. SPIRIVA [Concomitant]
     Active Substance: TIOTROPIUM BROMIDE MONOHYDRATE
  7. METFORMIN [Concomitant]
     Active Substance: METFORMIN HYDROCHLORIDE
  8. CALCIUM [Concomitant]
     Active Substance: CALCIUM
  9. LOSARTAN POTASSIUM W/HCTZ [Concomitant]
  10. HYDROCODONE [Concomitant]
     Active Substance: HYDROCODONE
  11. AMLODIPINE [Concomitant]
     Active Substance: AMLODIPINE BESYLATE
  12. LEVEMIR [Concomitant]
     Active Substance: INSULIN DETEMIR
  13. JANUVIA [Concomitant]
     Active Substance: SITAGLIPTIN PHOSPHATE
  14. OMEPRAZOLE. [Concomitant]
     Active Substance: OMEPRAZOLE
  15. KEPPRA [Concomitant]
     Active Substance: LEVETIRACETAM
  16. CARVEDILOL. [Concomitant]
     Active Substance: CARVEDILOL

REACTIONS (3)
  - Cardiac arrest [None]
  - Nausea [None]
  - Respiratory arrest [None]

NARRATIVE: CASE EVENT DATE: 20190515
